FAERS Safety Report 5152756-0 (Version None)
Quarter: 2006Q4

REPORT INFORMATION
  Report Type: 
  Country: None (occurrence: None)
  Receive Date: 20060918
  Receipt Date: 20050725
  Transmission Date: 20070319
  Serious: Yes (Other)
  Sender: FDA-Public Use
  Company Number: US-JNJFOC-20050701092

PATIENT
  Age: 19 Month
  Sex: Female
  Weight: 10.2 kg

DRUGS (8)
  1. TOPAMAX [Suspect]
     Indication: INFANTILE SPASMS
     Dosage: 125 MG, 2 IN 1 DAY ORAL
     Route: 048
     Dates: start: 20040916, end: 20050405
  2. PHENOBARBITOL (PHENOBARBITOL) [Concomitant]
  3. CLONAZEPAM [Concomitant]
  4. LEVETIRACETAM [Concomitant]
  5. CLARITIN [Concomitant]
  6. ZANTAC [Concomitant]
  7. REGLAN [Concomitant]
  8. SEPTRA [Concomitant]

REACTIONS (1)
  - STAG HORN CALCULUS [None]
